FAERS Safety Report 14327758 (Version 1)
Quarter: 2017Q4

REPORT INFORMATION
  Report Type: Spontaneous
  Country: US (occurrence: US)
  Receive Date: 20171227
  Receipt Date: 20171227
  Transmission Date: 20180321
  Serious: No
  Sender: FDA-Public Use
  Company Number: US-PFIZER INC-2017546819

PATIENT
  Sex: Male

DRUGS (2)
  1. LYRICA CR [Suspect]
     Active Substance: PREGABALIN
     Dosage: 300 MG, 2X/DAY
  2. LYRICA CR [Suspect]
     Active Substance: PREGABALIN
     Indication: NEUROPATHY PERIPHERAL
     Dosage: 75 MG, 3X/DAY

REACTIONS (5)
  - Drug ineffective [Unknown]
  - Erythema [Unknown]
  - Pain [Unknown]
  - Skin exfoliation [Unknown]
  - Intentional product misuse [Unknown]
